FAERS Safety Report 7224162-6 (Version None)
Quarter: 2011Q1

REPORT INFORMATION
  Report Type: 
  Country: None (occurrence: None)
  Receive Date: 20110106
  Receipt Date: 20110106
  Transmission Date: 20110831
  Serious: Yes (Other)
  Sender: FDA-Public Use
  Company Number: None

PATIENT
  Age: 61 Year
  Sex: Female

DRUGS (1)
  1. SIMVASTATIN [Suspect]
     Indication: HYPERCHOLESTEROLAEMIA
     Dosage: 1 TABLET ORALLY DAILY
     Route: 048
     Dates: start: 20100301, end: 20101201

REACTIONS (3)
  - URTICARIA [None]
  - PYREXIA [None]
  - TACHYCARDIA [None]
